FAERS Safety Report 5363515-8 (Version None)
Quarter: 2007Q2

REPORT INFORMATION
  Report Type: 
  Country: None (occurrence: None)
  Receive Date: 20070618
  Receipt Date: 20070618
  Transmission Date: 20071010
  Serious: Yes (Death)
  Sender: FDA-Public Use
  Company Number: None

PATIENT
  Age: 40 Year
  Sex: Female
  Weight: 99.7913 kg

DRUGS (2)
  1. ERLOTINIB  150 MG  OSI PHARMACEUTICAL [Suspect]
     Indication: BREAST CANCER METASTATIC
     Dates: start: 20070504, end: 20070524
  2. ERLOTINIB  150 MG  OSI PHARMACEUTICAL [Suspect]
     Indication: BREAST CANCER METASTATIC
     Dates: start: 20070526, end: 20070604

REACTIONS (8)
  - ACTIVITIES OF DAILY LIVING IMPAIRED [None]
  - ATRIAL FIBRILLATION [None]
  - BLOOD PRESSURE DECREASED [None]
  - DYSPNOEA [None]
  - OEDEMA [None]
  - PLEURAL EFFUSION [None]
  - RESPIRATORY DISORDER [None]
  - SEDATION [None]
